FAERS Safety Report 4989696-3 (Version None)
Quarter: 2006Q2

REPORT INFORMATION
  Report Type: 
  Country: None (occurrence: None)
  Receive Date: 20060501
  Receipt Date: 20060420
  Transmission Date: 20061013
  Serious: Yes (Death, Other)
  Sender: FDA-Public Use
  Company Number: 163-21880-06030848

PATIENT
  Age: 47 Year
  Sex: Female

DRUGS (2)
  1. REVLIMID [Suspect]
     Indication: MYELODYSPLASTIC SYNDROME
     Dosage: 10 MG QD ORAL ; 5 MG QD ORAL
     Route: 048
     Dates: start: 20060221, end: 20060317
  2. REVLIMID [Suspect]
     Indication: MYELODYSPLASTIC SYNDROME
     Dosage: 10 MG QD ORAL ; 5 MG QD ORAL
     Route: 048
     Dates: start: 20060328

REACTIONS (1)
  - THROMBOSIS [None]
